FAERS Safety Report 6536970-5 (Version None)
Quarter: 2010Q1

REPORT INFORMATION
  Report Type: 
  Country: None (occurrence: None)
  Receive Date: 20100107
  Receipt Date: 20081217
  Transmission Date: 20100710
  Serious: Yes (Hospitalization, Other)
  Sender: FDA-Public Use
  Company Number: 2008AP003595

PATIENT
  Age: 92 Year
  Sex: Male

DRUGS (10)
  1. ALBUTEROL SULFATE [Suspect]
     Dosage: INH
     Route: 055
  2. ANTIBIOTICS [Concomitant]
  3. METOPROLOL - SLOW RELEASE [Concomitant]
  4. FINASTERIDE [Concomitant]
  5. ESOMEPRAZOLE [Concomitant]
  6. FUROSEMIDE [Concomitant]
  7. TAMSULOSIN HCL [Concomitant]
  8. ASPIRIN [Concomitant]
  9. GUAIFENESIN [Concomitant]
  10. BIMATOPROST [Concomitant]

REACTIONS (5)
  - BREATH SOUNDS ABNORMAL [None]
  - BRONCHOSPASM PARADOXICAL [None]
  - DYSPNOEA [None]
  - SPEECH DISORDER [None]
  - STRIDOR [None]
